FAERS Safety Report 9093109 (Version 1)
Quarter: 2013Q1

REPORT INFORMATION
  Report Type: Spontaneous
  Country: US (occurrence: None)
  Receive Date: 20130213
  Receipt Date: 20130213
  Transmission Date: 20140127
  Serious: Yes (Death, Hospitalization)
  Sender: FDA-Public Use
  Company Number: None

PATIENT
  Age: 60 Year
  Sex: Male
  Weight: 84.8 kg

DRUGS (2)
  1. BEVACIZUMAB [Suspect]
     Indication: GLIOBLASTOMA
     Dosage: 10MG/KG DAYS 1 + 15 IV
     Route: 042
     Dates: start: 20121102, end: 20121130
  2. ETOPOSIDE [Suspect]
     Indication: GLIOBLASTOMA
     Dosage: 50 MG/M2 DAYS 1-21 ORAL
     Route: 048
     Dates: start: 20121116, end: 20121206

REACTIONS (5)
  - Febrile neutropenia [None]
  - White blood cell count decreased [None]
  - Lymphopenia [None]
  - Platelet count decreased [None]
  - Pulmonary embolism [None]
